FAERS Safety Report 7451947-3 (Version None)
Quarter: 2011Q2

REPORT INFORMATION
  Report Type: 
  Country: None (occurrence: None)
  Receive Date: 20110502
  Receipt Date: 20100816
  Transmission Date: 20111010
  Serious: No
  Sender: FDA-Public Use
  Company Number: US-ASTRAZENECA-2010SE38678

PATIENT
  Sex: Female

DRUGS (3)
  1. SEROQUEL [Suspect]
     Route: 048
  2. NEXIUM [Suspect]
     Route: 048
  3. ZOMIG [Suspect]
     Route: 065

REACTIONS (3)
  - SINUSITIS [None]
  - IMMUNODEFICIENCY [None]
  - INFECTION [None]
